FAERS Safety Report 11848794 (Version 1)
Quarter: 2015Q4

REPORT INFORMATION
  Report Type: Report from Study
  Country: US (occurrence: US)
  Receive Date: 20151218
  Receipt Date: 20151218
  Transmission Date: 20160305
  Serious: Yes (Hospitalization)
  Sender: FDA-Public Use
  Company Number: US-TEVA-617005USA

PATIENT
  Age: 28 Year
  Sex: Female
  Weight: 72.64 kg

DRUGS (50)
  1. LORAZEPAM. [Concomitant]
     Active Substance: LORAZEPAM
     Indication: NAUSEA
     Dosage: AS REQUIRED
     Route: 048
     Dates: start: 20151018, end: 20151025
  2. ZOSYN [Concomitant]
     Active Substance: PIPERACILLIN SODIUM\TAZOBACTAM SODIUM
     Indication: FEBRILE NEUTROPENIA
     Dosage: ONCE
     Route: 042
     Dates: start: 20151107, end: 20151107
  3. METHYLPREDNISOLONE. [Concomitant]
     Active Substance: METHYLPREDNISOLONE
     Indication: FEBRILE NEUTROPENIA
     Dosage: ONCE
     Route: 042
     Dates: start: 20151107, end: 20151107
  4. CARBOPLATIN. [Suspect]
     Active Substance: CARBOPLATIN
     Dosage: AUC 6; DAY 1 OF FOUR 21-DAY CYCLES
     Route: 042
     Dates: start: 20150618, end: 20150820
  5. PACLITAXEL. [Suspect]
     Active Substance: PACLITAXEL
     Indication: TRIPLE NEGATIVE BREAST CANCER
     Dosage: DAY 1 OF 12 WEEKLY CYCLES
     Route: 042
     Dates: start: 20150618, end: 20150910
  6. LUPRON [Concomitant]
     Active Substance: LEUPROLIDE ACETATE
     Indication: OVARIAN DISORDER
     Route: 030
     Dates: start: 20150611
  7. ERGOCALCIFEROL. [Concomitant]
     Active Substance: ERGOCALCIFEROL
     Indication: VITAMIN D DEFICIENCY
     Route: 048
     Dates: start: 201504
  8. RANITIDINE [Concomitant]
     Active Substance: RANITIDINE\RANITIDINE HYDROCHLORIDE
     Indication: PREMEDICATION
     Dosage: DAYS 1, 8 AND 15 OF EACH CYCLE
     Route: 042
     Dates: start: 20150618
  9. EMEND [Concomitant]
     Active Substance: APREPITANT
     Indication: ABDOMINAL PAIN
  10. LIDOCAINE. [Concomitant]
     Active Substance: LIDOCAINE
     Indication: CENTRAL VENOUS CATHETERISATION
     Dosage: AS REQUIRED
     Route: 061
     Dates: start: 20150618
  11. IRON SUPPLEMENT [Concomitant]
     Active Substance: IRON
     Indication: ANAEMIA
     Route: 048
     Dates: start: 2015
  12. BAKING SODA SALT [Concomitant]
     Indication: MUCOSAL INFLAMMATION
  13. LORAZEPAM. [Concomitant]
     Active Substance: LORAZEPAM
     Indication: VOMITING
     Dosage: ONCE
     Route: 042
     Dates: start: 20151018, end: 20151018
  14. COMPAZINE [Concomitant]
     Active Substance: PROCHLORPERAZINE MALEATE
     Indication: NAUSEA
     Dosage: AS REQUIRED
     Route: 048
     Dates: start: 20150618
  15. VITAMIN D3 [Concomitant]
     Active Substance: CHOLECALCIFEROL
     Indication: VITAMIN D DEFICIENCY
     Dosage: 1000 IU (INTERNATIONAL UNIT) DAILY;
     Route: 048
     Dates: start: 20150730
  16. PREVACID [Concomitant]
     Active Substance: LANSOPRAZOLE
     Indication: PROPHYLAXIS
     Dosage: 15 MILLIGRAM DAILY;
     Route: 048
     Dates: start: 20150820
  17. NEULASTA [Concomitant]
     Active Substance: PEGFILGRASTIM
     Dosage: ONCE
     Route: 058
     Dates: start: 20151001, end: 20151001
  18. BACTRIM DS [Concomitant]
     Active Substance: SULFAMETHOXAZOLE\TRIMETHOPRIM
     Indication: GROIN ABSCESS
     Route: 048
     Dates: start: 20150928, end: 20151002
  19. PHENERGAN [Concomitant]
     Active Substance: PROMETHAZINE HYDROCHLORIDE
     Indication: VOMITING
     Dosage: ONCE
     Route: 042
     Dates: start: 20151018, end: 20151018
  20. ABH (HALOPERIDOL, DIPHENHYDRAMINE HYDROCHLORIDE, LORAZEPAM) [Concomitant]
     Indication: PROPHYLAXIS
  21. BENADRYL [Concomitant]
     Active Substance: DIPHENHYDRAMINE HYDROCHLORIDE
     Indication: PREMEDICATION
     Dosage: DAYS 1, 8 AND 15 OF EACH CYCLE
     Route: 042
     Dates: start: 20150618
  22. DOXORUBICIN [Suspect]
     Active Substance: DOXORUBICIN
     Indication: TRIPLE NEGATIVE BREAST CANCER
     Dosage: CHEMOTHERAPY SEGMENT 2
     Route: 042
     Dates: start: 20150917, end: 20151029
  23. CYCLOPHOSPHAMIDE. [Suspect]
     Active Substance: CYCLOPHOSPHAMIDE
     Indication: TRIPLE NEGATIVE BREAST CANCER
     Dosage: CHEMOTHERAPY SEGMENT 2
     Route: 042
     Dates: start: 20150917, end: 20151029
  24. ALOXI [Concomitant]
     Active Substance: PALONOSETRON HYDROCHLORIDE
     Indication: PROPHYLAXIS OF NAUSEA AND VOMITING
     Route: 042
     Dates: start: 20150618
  25. NEULASTA [Concomitant]
     Active Substance: PEGFILGRASTIM
     Dosage: ONCE
     Route: 058
     Dates: start: 20151015, end: 20151015
  26. IBUPROFEN. [Concomitant]
     Active Substance: IBUPROFEN
     Indication: BACK PAIN
     Dosage: AS REQUIRED
     Route: 048
     Dates: start: 20150925
  27. PROMETHAZINE [Concomitant]
     Active Substance: PROMETHAZINE\PROMETHAZINE HYDROCHLORIDE
     Indication: NAUSEA
     Dosage: AS REQUIRED
     Route: 048
     Dates: start: 20151018, end: 20151020
  28. PYRIDOXINE [Concomitant]
     Active Substance: PYRIDOXINE
     Indication: NAUSEA
     Dosage: 100 MILLIGRAM DAILY;
     Route: 048
     Dates: start: 20151018
  29. VANCOMYCIN [Concomitant]
     Active Substance: VANCOMYCIN
     Indication: FEBRILE NEUTROPENIA
     Dosage: ONCE
     Route: 042
     Dates: start: 20151107, end: 20151107
  30. NEULASTA [Concomitant]
     Active Substance: PEGFILGRASTIM
     Indication: ANAEMIA PROPHYLAXIS
     Dosage: ONCE
     Route: 058
     Dates: start: 20150917, end: 20150917
  31. MIRALAX [Concomitant]
     Active Substance: POLYETHYLENE GLYCOL 3350
     Indication: CONSTIPATION
     Dosage: 17 GRAM DAILY;
     Route: 048
     Dates: start: 20150921
  32. MIRACLE MOUTHWASH [Concomitant]
     Indication: STOMATITIS
     Dosage: 160 ML DAILY;
     Route: 048
     Dates: start: 20151001
  33. PHENERGAN [Concomitant]
     Active Substance: PROMETHAZINE HYDROCHLORIDE
     Indication: NAUSEA
     Dosage: AS REQUIRED
     Route: 054
     Dates: start: 20151018, end: 20151020
  34. DIPHENHYDRAMINE. [Concomitant]
     Active Substance: DIPHENHYDRAMINE
     Indication: FEBRILE NEUTROPENIA
     Dosage: ONCE
     Dates: start: 20151107, end: 20151107
  35. IMODIUM [Concomitant]
     Active Substance: LOPERAMIDE HYDROCHLORIDE
     Indication: DIARRHOEA
     Dosage: 1 TABLET,AS REQUIRED
     Route: 048
     Dates: start: 20150620
  36. PROMETHAZINE [Concomitant]
     Active Substance: PROMETHAZINE\PROMETHAZINE HYDROCHLORIDE
     Indication: VOMITING
     Dosage: Q4H PRN
     Route: 048
     Dates: start: 20151029
  37. ABH (HALOPERIDOL, DIPHENHYDRAMINE HYDROCHLORIDE, LORAZEPAM) [Concomitant]
     Indication: NAUSEA
     Dosage: Q6H PRN
     Route: 054
     Dates: start: 20151029
  38. ABT-888 (VELIPARIB) [Suspect]
     Active Substance: VELIPARIB
     Route: 048
     Dates: start: 20150618, end: 20150917
  39. DEXAMETHASONE. [Concomitant]
     Active Substance: DEXAMETHASONE
     Indication: PREMEDICATION
     Dosage: DAYS 1, 8 AND 15 OF EACH CYCLE
     Route: 042
     Dates: start: 20150618
  40. DEXAMETHASONE. [Concomitant]
     Active Substance: DEXAMETHASONE
     Indication: PROPHYLAXIS OF NAUSEA AND VOMITING
     Dosage: 4 MILLIGRAM DAILY;
     Route: 048
     Dates: start: 20151015, end: 20151015
  41. ACETAMINOPHEN. [Concomitant]
     Active Substance: ACETAMINOPHEN
     Indication: PREMEDICATION
     Dosage: DAYS 1, 8 AND 15 OF EACH CYCLE, AS REQUIRED
     Route: 048
     Dates: start: 20150618
  42. VITAMIN B12 [Concomitant]
     Active Substance: CYANOCOBALAMIN
     Dosage: AS REQUIRED
     Route: 048
     Dates: start: 20150730
  43. FAMOTIDINE. [Concomitant]
     Active Substance: FAMOTIDINE
     Indication: PROPHYLAXIS OF NAUSEA AND VOMITING
     Dosage: AS REQUIRED
     Route: 048
     Dates: start: 20150709
  44. ONDANSETRON [Concomitant]
     Active Substance: ONDANSETRON
     Indication: NAUSEA
     Dosage: AS REQUIRED
     Route: 048
     Dates: start: 20150709
  45. NEUPOGEN [Concomitant]
     Active Substance: FILGRASTIM
     Indication: NEUTROPENIA
     Dosage: ONCE
     Route: 058
     Dates: start: 20150903, end: 20150903
  46. PYRIDOXINE [Concomitant]
     Active Substance: PYRIDOXINE
     Indication: VOMITING
  47. VITAMIN B6 [Concomitant]
     Active Substance: PYRIDOXINE HYDROCHLORIDE
     Dosage: 100 MILLIGRAM DAILY;
     Route: 048
     Dates: start: 20150730
  48. EMEND [Concomitant]
     Active Substance: APREPITANT
     Indication: PROPHYLAXIS OF NAUSEA AND VOMITING
     Dosage: DAYS 1-3 OF EACH CYCLE
     Route: 048
     Dates: start: 20150709
  49. BAKING SODA SALT [Concomitant]
     Indication: STOMATITIS
     Route: 048
     Dates: start: 20150928
  50. MIRACLE MOUTHWASH [Concomitant]
     Indication: MUCOSAL INFLAMMATION

REACTIONS (1)
  - Febrile neutropenia [Recovering/Resolving]

NARRATIVE: CASE EVENT DATE: 20151110
